FAERS Safety Report 5073559-1 (Version None)
Quarter: 2006Q3

REPORT INFORMATION
  Report Type: 
  Country: None (occurrence: None)
  Receive Date: 20060717
  Receipt Date: 20060109
  Transmission Date: 20061208
  Serious: No
  Sender: FDA-Public Use
  Company Number: 2006000085

PATIENT
  Age: 85 Year
  Sex: Male
  Weight: 73.4827 kg

DRUGS (5)
  1. TARCEVA [Suspect]
     Indication: NON-SMALL CELL LUNG CANCER
     Dosage: 150 MG (QD), ORAL
     Route: 048
     Dates: start: 20051201
  2. THIAZIDE [Concomitant]
  3. SYNTHROID [Concomitant]
  4. NORVASC [Concomitant]
  5. ANTACID TAB [Concomitant]

REACTIONS (3)
  - DYSGEUSIA [None]
  - EYE IRRITATION [None]
  - RASH [None]
